FAERS Safety Report 9059875 (Version 1)
Quarter: 2013Q2

REPORT INFORMATION
  Report Type: Spontaneous
  Country: US (occurrence: None)
  Receive Date: 20130206
  Receipt Date: 20130206
  Transmission Date: 20140414
  Serious: Yes (Hospitalization)
  Sender: FDA-Public Use
  Company Number: None

PATIENT
  Age: 56 Year
  Sex: Male
  Weight: 81.65 kg

DRUGS (6)
  1. SUNITINIB [Suspect]
     Indication: COLON CANCER METASTATIC
     Route: 048
     Dates: start: 20121126, end: 20121231
  2. IXABEPILONE [Suspect]
     Indication: COLON CANCER METASTATIC
     Route: 042
  3. BYSTOLIC [Concomitant]
  4. ALEVE [Concomitant]
  5. GAS-X [Concomitant]
  6. MUCINEX DM [Concomitant]

REACTIONS (4)
  - Disease progression [None]
  - Dyspnoea [None]
  - Atrial fibrillation [None]
  - Pulmonary oedema [None]
